FAERS Safety Report 5632232-9 (Version None)
Quarter: 2008Q1

REPORT INFORMATION
  Report Type: 
  Country: None (occurrence: None)
  Receive Date: 20080220
  Receipt Date: 20080212
  Transmission Date: 20080703
  Serious: Yes (Other)
  Sender: FDA-Public Use
  Company Number: US-PURDUE-USA_2008_0031480

PATIENT
  Sex: Female

DRUGS (2)
  1. OXYCONTIN [Suspect]
     Indication: COMPLEX REGIONAL PAIN SYNDROME
     Dosage: 120 MG, TID
     Dates: end: 20080111
  2. OXYCONTIN [Suspect]
     Dosage: UNK, UNK
     Dates: end: 20080111

REACTIONS (4)
  - DRUG EFFECT DECREASED [None]
  - HUMERUS FRACTURE [None]
  - PAIN [None]
  - UPPER LIMB FRACTURE [None]
